FAERS Safety Report 4861830-5 (Version None)
Quarter: 2005Q4

REPORT INFORMATION
  Report Type: 
  Country: None (occurrence: None)
  Receive Date: 20051130
  Receipt Date: 20050720
  Transmission Date: 20060501
  Serious: Yes (Hospitalization)
  Sender: FDA-Public Use
  Company Number: 2005104962

PATIENT
  Age: 55 Year
  Sex: Female
  Weight: 68.0396 kg

DRUGS (15)
  1. ZYVOX [Suspect]
     Indication: CELLULITIS
     Dosage: 1200 MG (600 MG,2 IN 1 D),ORAL
     Route: 048
     Dates: start: 20050714
  2. PAXIL [Suspect]
     Indication: DEPRESSION
     Dosage: 40 MG (EVERYDAY),ORAL
     Route: 048
  3. PREMARIN [Concomitant]
  4. ASPIRIN [Concomitant]
  5. FLEXERIL [Concomitant]
  6. VICODIN [Concomitant]
  7. ALBUTEROL [Concomitant]
  8. ADVAIR DISKUS 100/50 [Concomitant]
  9. CLONIDINE [Concomitant]
  10. LISINOPRIL [Concomitant]
  11. OXYCONTIN [Concomitant]
  12. OXYCODONE (OXYCODONE) [Concomitant]
  13. NEURONTIN [Concomitant]
  14. COREG [Concomitant]
  15. LASIX [Concomitant]

REACTIONS (2)
  - DRUG INTERACTION [None]
  - SEROTONIN SYNDROME [None]
